FAERS Safety Report 12397000 (Version 1)
Quarter: 2016Q2

REPORT INFORMATION
  Report Type: Spontaneous
  Country: US (occurrence: None)
  Receive Date: 20160523
  Receipt Date: 20160523
  Transmission Date: 20160815
  Serious: No
  Sender: FDA-Public Use
  Company Number: None

PATIENT
  Age: 58 Year
  Sex: Female

DRUGS (5)
  1. XELJANZ [Suspect]
     Active Substance: TOFACITINIB CITRATE
     Indication: RHEUMATOID ARTHRITIS
     Route: 048
     Dates: start: 20150401
  2. PREDNISONE. [Concomitant]
     Active Substance: PREDNISONE
  3. RESTASIS [Concomitant]
     Active Substance: CYCLOSPORINE
  4. IBU [Concomitant]
     Active Substance: IBUPROFEN
  5. FISH OIL [Concomitant]
     Active Substance: FISH OIL

REACTIONS (2)
  - Dry eye [None]
  - Drug ineffective [None]

NARRATIVE: CASE EVENT DATE: 201603
